FAERS Safety Report 9618597 (Version 2)
Quarter: 2013Q4

REPORT INFORMATION
  Report Type: Spontaneous
  Country: US (occurrence: US)
  Receive Date: 20131014
  Receipt Date: 20131031
  Transmission Date: 20140711
  Serious: No
  Sender: FDA-Public Use
  Company Number: US-PFIZER INC-2013289443

PATIENT
  Age: 29 Year
  Sex: Female

DRUGS (1)
  1. ADVIL [Suspect]
     Indication: PAIN
     Dosage: 400 MG (TWO TABLETS OF 200MG), ONCE A DAY
     Route: 048
     Dates: start: 20130929, end: 201310

REACTIONS (1)
  - Dizziness [Recovered/Resolved]
